FAERS Safety Report 20575788 (Version 1)
Quarter: 2022Q1

REPORT INFORMATION
  Report Type: Other
  Country: SE (occurrence: SE)
  Receive Date: 20220310
  Receipt Date: 20220310
  Transmission Date: 20220424
  Serious: Yes (Hospitalization, Other)
  Sender: FDA-Public Use
  Company Number: SE-CELLTRION INC.-2022SE002577

PATIENT

DRUGS (16)
  1. RITUXIMAB [Suspect]
     Active Substance: RITUXIMAB
     Indication: Follicular lymphoma
     Dosage: 375 MG/M2
     Route: 065
     Dates: start: 20220104
  2. EPCORITAMAB [Suspect]
     Active Substance: EPCORITAMAB
     Indication: Follicular lymphoma
     Dosage: 48 MG (DOSE FORM: 120)
     Route: 065
     Dates: start: 20211221
  3. EPCORITAMAB [Suspect]
     Active Substance: EPCORITAMAB
     Dosage: 0.16 MG (DOSE FORM: 120)
     Route: 065
     Dates: start: 20211207
  4. EPCORITAMAB [Suspect]
     Active Substance: EPCORITAMAB
     Dosage: 0.8 MG (DOSE FORM: 120)
     Route: 065
     Dates: start: 20211214
  5. EPCORITAMAB [Suspect]
     Active Substance: EPCORITAMAB
     Dosage: DOSE FORM:120
     Route: 065
     Dates: start: 20220111
  6. LENALIDOMIDE [Suspect]
     Active Substance: LENALIDOMIDE
     Indication: Follicular lymphoma
     Dosage: 20 MILLIGRAM, QD (DOSE FORM: 5)
     Route: 048
     Dates: start: 20220114
  7. LENALIDOMIDE [Suspect]
     Active Substance: LENALIDOMIDE
     Dosage: 20 MILLIGRAM, QD (DOSE FORM: 5)
     Route: 048
     Dates: start: 20211123
  8. LENALIDOMIDE [Suspect]
     Active Substance: LENALIDOMIDE
     Dosage: 20 MILLIGRAM, QD (DOSE FORM: 5)
     Route: 048
     Dates: start: 20220114
  9. SULFAMETHOXAZOLE\TRIMETHOPRIM [Suspect]
     Active Substance: SULFAMETHOXAZOLE\TRIMETHOPRIM
     Indication: Pneumocystis jirovecii infection
     Dosage: UNK
     Route: 065
     Dates: start: 20220117
  10. POTASSIUM CHLORIDE [Concomitant]
     Active Substance: POTASSIUM CHLORIDE
     Indication: Product used for unknown indication
     Dosage: UNK
     Route: 065
     Dates: start: 20220126, end: 20220127
  11. PIPERACILLIN [Concomitant]
     Active Substance: PIPERACILLIN
     Indication: Product used for unknown indication
     Dosage: UNK
     Route: 065
     Dates: start: 20220111, end: 20220112
  12. SITAGLIPTIN [Concomitant]
     Active Substance: SITAGLIPTIN
     Indication: Product used for unknown indication
     Route: 065
  13. METFORMIN [Concomitant]
     Active Substance: METFORMIN HYDROCHLORIDE
     Indication: Product used for unknown indication
     Route: 065
  14. OXYGEN [Concomitant]
     Active Substance: OXYGEN
     Indication: Product used for unknown indication
     Dosage: UNK
     Route: 065
     Dates: start: 20220117, end: 20220120
  15. TAZOBACTAM [Concomitant]
     Active Substance: TAZOBACTAM
     Indication: Product used for unknown indication
     Route: 065
  16. CALCIUM CHLORIDE [Concomitant]
     Active Substance: CALCIUM CHLORIDE
     Indication: Product used for unknown indication
     Dosage: UNK
     Route: 065
     Dates: start: 20220126, end: 20220127

REACTIONS (4)
  - Dehydration [Not Recovered/Not Resolved]
  - Cytokine release syndrome [Recovered/Resolved]
  - Pneumocystis jirovecii infection [Recovering/Resolving]
  - Diarrhoea [Not Recovered/Not Resolved]

NARRATIVE: CASE EVENT DATE: 20220111
